FAERS Safety Report 15719667 (Version 1)
Quarter: 2018Q4

REPORT INFORMATION
  Report Type: Report from Study
  Country: None (occurrence: CA)
  Receive Date: 20181213
  Receipt Date: 20181213
  Transmission Date: 20190205
  Serious: Yes (Other)
  Sender: FDA-Public Use
  Company Number: CA-ABBVIE-16K-028-1763320-00

PATIENT
  Sex: Male

DRUGS (4)
  1. PAMIDRONATE [Concomitant]
     Active Substance: PAMIDRONATE DISODIUM
     Indication: OSTEOMYELITIS
  2. HUMIRA [Suspect]
     Active Substance: ADALIMUMAB
     Indication: COLITIS ULCERATIVE
     Route: 058
     Dates: start: 20140107
  3. HUMIRA [Suspect]
     Active Substance: ADALIMUMAB
     Route: 058
     Dates: start: 2018
  4. PAMIDRONATE [Concomitant]
     Active Substance: PAMIDRONATE DISODIUM
     Indication: COLITIS ULCERATIVE

REACTIONS (6)
  - Osteitis [Not Recovered/Not Resolved]
  - Psoriasis [Recovering/Resolving]
  - Bowel movement irregularity [Unknown]
  - Drug level changed [Not Recovered/Not Resolved]
  - Colitis ulcerative [Unknown]
  - Eosinophilic oesophagitis [Not Recovered/Not Resolved]
